FAERS Safety Report 15249397 (Version 1)
Quarter: 2018Q3

REPORT INFORMATION
  Report Type: Report from Study
  Country: US (occurrence: US)
  Receive Date: 20180807
  Receipt Date: 20180807
  Transmission Date: 20181010
  Serious: Yes (Hospitalization)
  Sender: FDA-Public Use
  Company Number: US-ROCHE-2068573

PATIENT
  Age: 58 Year
  Sex: Female
  Weight: 129.3 kg

DRUGS (24)
  1. AMITRIPTYLIN [Concomitant]
     Active Substance: AMITRIPTYLINE
  2. CALCIPOTRIENE. [Concomitant]
     Active Substance: CALCIPOTRIENE
  3. INSULIN GLARGINE [Concomitant]
     Active Substance: INSULIN GLARGINE
  4. BACLOFEN. [Concomitant]
     Active Substance: BACLOFEN
  5. LACTOBACILLUS ACIDOPHILUS [Concomitant]
     Active Substance: LACTOBACILLUS ACIDOPHILUS
  6. OMEPRAZOLE. [Concomitant]
     Active Substance: OMEPRAZOLE
  7. RITUXIMAB. [Concomitant]
     Active Substance: RITUXIMAB
     Route: 042
  8. ZOLPIDEM [Concomitant]
     Active Substance: ZOLPIDEM\ZOLPIDEM TARTRATE
  9. PIRFENIDONE. [Suspect]
     Active Substance: PIRFENIDONE
     Indication: RHEUMATOID ARTHRITIS
     Dosage: 3 CAPSULE
     Route: 048
     Dates: start: 20171110, end: 20171224
  10. PIRFENIDONE. [Suspect]
     Active Substance: PIRFENIDONE
     Indication: INTERSTITIAL LUNG DISEASE
  11. ACETYLCYSTEIN [Concomitant]
     Active Substance: ACETYLCYSTEINE
  12. ALENDRONATE [Concomitant]
     Active Substance: ALENDRONATE SODIUM
  13. CITALOPRAM [Concomitant]
     Active Substance: CITALOPRAM HYDROBROMIDE
  14. NITROGLYCERINE [Concomitant]
     Active Substance: NITROGLYCERIN
  15. RASPBERRY KETONES [Concomitant]
     Active Substance: RASPBERRY KETONE
  16. ALPRAZOLAM. [Concomitant]
     Active Substance: ALPRAZOLAM
  17. ATENOLOL. [Concomitant]
     Active Substance: ATENOLOL
  18. BUTALBITAL [Concomitant]
     Active Substance: BUTALBITAL
  19. MYCOPHENOLATE MOFETIL. [Concomitant]
     Active Substance: MYCOPHENOLATE MOFETIL
     Route: 048
  20. OXYCODONE [Concomitant]
     Active Substance: OXYCODONE
  21. METFORMIN [Concomitant]
     Active Substance: METFORMIN HYDROCHLORIDE
  22. NOVOLOG [Concomitant]
     Active Substance: INSULIN ASPART
  23. PSYLLIUM SEED [Concomitant]
  24. BACTRIM [Concomitant]
     Active Substance: SULFAMETHOXAZOLE\TRIMETHOPRIM

REACTIONS (7)
  - Muscle spasms [Recovered/Resolved]
  - Throat tightness [Unknown]
  - Haematuria [Unknown]
  - Dyspnoea [Unknown]
  - Cystitis [Unknown]
  - Peripheral swelling [Unknown]
  - Pain [Recovered/Resolved with Sequelae]

NARRATIVE: CASE EVENT DATE: 20171224
